FAERS Safety Report 6978989-6 (Version None)
Quarter: 2010Q3

REPORT INFORMATION
  Report Type: 
  Country: None (occurrence: None)
  Receive Date: 20100824
  Receipt Date: 20100521
  Transmission Date: 20110219
  Serious: Yes (Other)
  Sender: FDA-Public Use
  Company Number: 309012

PATIENT
  Age: 72 Year
  Sex: Female
  Weight: 81.6 kg

DRUGS (5)
  1. VICTOZA [Suspect]
     Indication: TYPE 2 DIABETES MELLITUS
     Dosage: 0.6 MG, QD, SUBCUTANEOUS
     Route: 058
     Dates: start: 20100427, end: 20100427
  2. METFORM (METFORMIN HYDROCHLORIDE) [Concomitant]
  3. ACTOS [Concomitant]
  4. LOVASTATIN [Concomitant]
  5. AMLODIPINE [Concomitant]

REACTIONS (2)
  - HEADACHE [None]
  - VOMITING [None]
